FAERS Safety Report 23796860 (Version 2)
Quarter: 2024Q2

REPORT INFORMATION
  Report Type: Spontaneous
  Country: US (occurrence: US)
  Receive Date: 20240430
  Receipt Date: 20240521
  Transmission Date: 20240715
  Serious: No
  Sender: FDA-Public Use
  Company Number: US-CELLTRION INC.-2024US008895

PATIENT

DRUGS (2)
  1. TRUXIMA [Suspect]
     Active Substance: RITUXIMAB-ABBS
     Indication: Peripheral sensory neuropathy
     Dosage: 10 MILLIGRAM PER MILLILITRE
     Route: 042
     Dates: start: 202311
  2. TRUXIMA [Suspect]
     Active Substance: RITUXIMAB-ABBS
     Indication: Autoimmune disorder

REACTIONS (2)
  - Immune system disorder [Unknown]
  - Therapeutic product ineffective for unapproved indication [Unknown]

NARRATIVE: CASE EVENT DATE: 20231101
